FAERS Safety Report 5531523-X (Version None)
Quarter: 2007Q4

REPORT INFORMATION
  Report Type: 
  Country: None (occurrence: None)
  Receive Date: 20071203
  Receipt Date: 20071123
  Transmission Date: 20080405
  Serious: Yes (Hospitalization)
  Sender: FDA-Public Use
  Company Number: FR-NOVOPROD-269727

PATIENT
  Age: 64 Year
  Sex: Male

DRUGS (12)
  1. NOVONORM [Suspect]
     Indication: TYPE 2 DIABETES MELLITUS
     Dosage: 6 MG, QD
     Route: 048
     Dates: start: 20040101, end: 20071106
  2. PREVISCAN                          /00261401/ [Concomitant]
     Dosage: 5 MG, QD
  3. CARVEDILOL [Concomitant]
     Dosage: 50 MG, QD
  4. ENALAPRIL [Concomitant]
     Dosage: 20 MG, QD
  5. METFORMIN HCL [Concomitant]
     Dosage: 2 G, QD
     Dates: start: 20040101
  6. KARDEGIC                           /00002703/ [Concomitant]
     Dosage: 75 MG, QD
  7. PLAVIX [Concomitant]
     Dosage: 75 MG, QD
  8. ELISOR [Concomitant]
     Dosage: 10 MG, QD
  9. CREON                              /00014701/ [Concomitant]
     Dosage: 36000 U, QD
  10. DOMPERIDONE [Concomitant]
     Dosage: 20 MG, QD
  11. BROMAZEPAM [Concomitant]
     Dosage: 6 MG, QD
  12. FORLAX [Concomitant]

REACTIONS (3)
  - HYPOGLYCAEMIA [None]
  - LOSS OF CONSCIOUSNESS [None]
  - MALAISE [None]
